FAERS Safety Report 6588830-1 (Version None)
Quarter: 2010Q1

REPORT INFORMATION
  Report Type: 
  Country: None (occurrence: None)
  Receive Date: 20100218
  Receipt Date: 20100216
  Transmission Date: 20100710
  Serious: Yes (Life-Threatening, Hospitalization, Disabling, Other)
  Sender: FDA-Public Use
  Company Number: A0841513A

PATIENT
  Age: 68 Year
  Sex: Female
  Weight: 48 kg

DRUGS (6)
  1. TYKERB [Suspect]
     Dosage: 1250MGD PER DAY
     Route: 048
     Dates: start: 20090101, end: 20100118
  2. MULTI-VITAMIN [Concomitant]
  3. METOPROLOL TARTRATE [Concomitant]
     Dosage: 25MG PER DAY
  4. VITAMIN D [Concomitant]
  5. XELODA [Concomitant]
     Dosage: 1500MG PER DAY
     Dates: start: 20090101
  6. HERCEPTIN [Concomitant]
     Dates: start: 20090422

REACTIONS (3)
  - DIARRHOEA [None]
  - DISEASE PROGRESSION [None]
  - NEUTROPENIA [None]
